FAERS Safety Report 12782819 (Version 1)
Quarter: 2016Q3

REPORT INFORMATION
  Report Type: Spontaneous
  Country: US (occurrence: US)
  Receive Date: 20160927
  Receipt Date: 20160927
  Transmission Date: 20161109
  Serious: No
  Sender: FDA-Public Use
  Company Number: US-BAYER-2016-181719

PATIENT
  Age: 81 Year
  Sex: Female
  Weight: 86.17 kg

DRUGS (1)
  1. MIRALAX [Suspect]
     Active Substance: POLYETHYLENE GLYCOL 3350
     Indication: ASTHMA
     Dosage: 1 DF, FOR 3-4 DAYS
     Route: 048
     Dates: start: 201609

REACTIONS (2)
  - Dizziness [Recovered/Resolved]
  - Product use issue [None]
